FAERS Safety Report 17690267 (Version 1)
Quarter: 2020Q2

REPORT INFORMATION
  Report Type: Report from Study
  Country: US (occurrence: US)
  Receive Date: 20200421
  Receipt Date: 20200421
  Transmission Date: 20200714
  Serious: Yes (Hospitalization, Other)
  Sender: FDA-Public Use
  Company Number: US-ACTELION-A-NJ2019-187420

PATIENT
  Age: 72 Year
  Sex: Female

DRUGS (17)
  1. SILDENAFIL. [Concomitant]
     Active Substance: SILDENAFIL
  2. ESTRADIOL. [Concomitant]
     Active Substance: ESTRADIOL
  3. FERROUS SULFATE. [Concomitant]
     Active Substance: FERROUS SULFATE
  4. OPSUMIT [Suspect]
     Active Substance: MACITENTAN
     Indication: PULMONARY ARTERIAL HYPERTENSION
     Dosage: 10 MG, QD
     Route: 048
     Dates: start: 20190207
  5. ACIDOPHILUS [Concomitant]
     Active Substance: LACTOBACILLUS ACIDOPHILUS
  6. IRON SUCROSE [Concomitant]
     Active Substance: IRON SUCROSE
  7. PANTOPRAZOLE [Concomitant]
     Active Substance: PANTOPRAZOLE
  8. UPTRAVI [Suspect]
     Active Substance: SELEXIPAG
     Indication: PULMONARY ARTERIAL HYPERTENSION
     Dosage: 200 MCG, BID
     Route: 048
     Dates: start: 20190222, end: 20190228
  9. TREPROSTINIL. [Concomitant]
     Active Substance: TREPROSTINIL
  10. POLYETHYLENE GLYCOL [Concomitant]
     Active Substance: POLYETHYLENE GLYCOLS
  11. TRAZODONE [Concomitant]
     Active Substance: TRAZODONE HYDROCHLORIDE
  12. ALLOPURINOL. [Concomitant]
     Active Substance: ALLOPURINOL
  13. ASPIRIN. [Concomitant]
     Active Substance: ASPIRIN
  14. NYSTATIN. [Concomitant]
     Active Substance: NYSTATIN
  15. POTASSIUM CHLORIDE. [Concomitant]
     Active Substance: POTASSIUM CHLORIDE
  16. HEPARIN [Concomitant]
     Active Substance: HEPARIN SODIUM
  17. OMEPRAZOLE. [Concomitant]
     Active Substance: OMEPRAZOLE

REACTIONS (23)
  - Anaemia [Unknown]
  - Packed red blood cell transfusion [Unknown]
  - Dyspnoea [Unknown]
  - Rhinitis allergic [Unknown]
  - Pericardial effusion [Unknown]
  - Cardiac failure [Recovered/Resolved]
  - Dyspnoea exertional [Recovered/Resolved]
  - Hypervolaemia [Recovered/Resolved]
  - Pulmonary hypertension [Unknown]
  - Sinus congestion [Not Recovered/Not Resolved]
  - Oedema peripheral [Recovered/Resolved]
  - Fluid retention [Unknown]
  - Exercise tolerance decreased [Recovered/Resolved]
  - Oedema [Recovered/Resolved]
  - Right atrial pressure increased [Unknown]
  - Pulmonary arterial pressure increased [Unknown]
  - Myalgia [Unknown]
  - Catheterisation cardiac [Unknown]
  - Concomitant disease progression [Recovered/Resolved]
  - Arthralgia [Unknown]
  - Walking distance test abnormal [Recovered/Resolved]
  - Respiratory rate decreased [Recovered/Resolved]
  - Feeling abnormal [Unknown]

NARRATIVE: CASE EVENT DATE: 20190224
